FAERS Safety Report 22596301 (Version 2)
Quarter: 2024Q1

REPORT INFORMATION
  Report Type: Report from Study
  Country: US (occurrence: US)
  Receive Date: 20230613
  Receipt Date: 20240131
  Transmission Date: 20240409
  Serious: Yes (Other)
  Sender: FDA-Public Use
  Company Number: US-INCYTE CORPORATION-2023IN006042

PATIENT

DRUGS (1)
  1. JAKAFI [Suspect]
     Active Substance: RUXOLITINIB
     Indication: Polycythaemia vera
     Dosage: UNK
     Route: 065
     Dates: start: 2019

REACTIONS (6)
  - Myeloproliferative neoplasm [Unknown]
  - Bone pain [Unknown]
  - Myalgia [Unknown]
  - Renal disorder [Unknown]
  - Low density lipoprotein increased [Unknown]
  - Disease progression [Unknown]
